FAERS Safety Report 6638662-0 (Version None)
Quarter: 2010Q1

REPORT INFORMATION
  Report Type: 
  Country: None (occurrence: None)
  Receive Date: 20100317
  Receipt Date: 20100305
  Transmission Date: 20100710
  Serious: Yes (Other)
  Sender: FDA-Public Use
  Company Number: US-JNJFOC-20100302386

PATIENT
  Age: 13 Year
  Sex: Female
  Weight: 68.99 kg

DRUGS (9)
  1. INFLIXIMAB [Suspect]
     Indication: JUVENILE ARTHRITIS
     Route: 042
  2. INFLIXIMAB [Suspect]
     Route: 042
  3. INFLIXIMAB [Suspect]
     Route: 042
  4. LORATADINE [Concomitant]
     Indication: PREMEDICATION
  5. IBUPROFEN [Concomitant]
     Dosage: 2 TABLETS EVERY 4-6 HOURS
  6. METHOTREXATE [Concomitant]
     Dosage: 2 TABLETS ONCE A WEEK
  7. TYLENOL [Concomitant]
  8. METHYLPREDNISOLONE [Concomitant]
     Indication: PREMEDICATION
  9. TYLENOL-500 [Concomitant]
     Indication: PREMEDICATION

REACTIONS (5)
  - CHEST DISCOMFORT [None]
  - DYSPNOEA [None]
  - GASTROENTERITIS VIRAL [None]
  - INFUSION RELATED REACTION [None]
  - UPPER RESPIRATORY TRACT INFECTION [None]
